FAERS Safety Report 19538964 (Version 6)
Quarter: 2023Q1

REPORT INFORMATION
  Report Type: Report from Study
  Country: IE (occurrence: IE)
  Receive Date: 20210713
  Receipt Date: 20230227
  Transmission Date: 20230417
  Serious: Yes (Other)
  Sender: FDA-Public Use
  Company Number: NVSC2021IE154318

PATIENT
  Age: 58 Year
  Sex: Female
  Weight: 78 kg

DRUGS (2)
  1. SIPONIMOD [Suspect]
     Active Substance: SIPONIMOD
     Indication: Secondary progressive multiple sclerosis
     Dosage: UNK
     Route: 048
     Dates: start: 20140515, end: 20160210
  2. SIPONIMOD [Suspect]
     Active Substance: SIPONIMOD
     Indication: Multiple sclerosis
     Dosage: 2 MG
     Route: 048
     Dates: start: 20170427, end: 20210713

REACTIONS (1)
  - Bowen^s disease [Not Recovered/Not Resolved]

NARRATIVE: CASE EVENT DATE: 20210624
